FAERS Safety Report 19823899 (Version 5)
Quarter: 2023Q4

REPORT INFORMATION
  Report Type: Spontaneous
  Country: IT (occurrence: IT)
  Receive Date: 20210914
  Receipt Date: 20231219
  Transmission Date: 20240110
  Serious: Yes (Life-Threatening, Hospitalization, Congenital Anomaly, Other)
  Sender: FDA-Public Use
  Company Number: IT-WATSON-2012-03323

PATIENT
  Age: 33 Week
  Sex: Female
  Weight: 1.97 kg

DRUGS (8)
  1. ACETAMINOPHEN [Suspect]
     Active Substance: ACETAMINOPHEN
     Indication: Product used for unknown indication
     Dosage: 8-9 G, DAILY
     Route: 064
  2. ACETAMINOPHEN [Suspect]
     Active Substance: ACETAMINOPHEN
     Dosage: 1 DOSAGE FORM, ONCE A DAY, 1-2 G/DAY (4TH MONTH TO DELIVERY),
     Route: 064
  3. DICLOFENAC [Suspect]
     Active Substance: DICLOFENAC
     Indication: Product used for unknown indication
     Dosage: 75 MG, DAILY X 8 WKS
     Route: 064
  4. DICLOFENAC [Suspect]
     Active Substance: DICLOFENAC
     Dosage: 100-200 MG, ONCE A DAY
     Route: 064
  5. NIMESULIDE [Suspect]
     Active Substance: NIMESULIDE
     Indication: Product used for unknown indication
     Dosage: 100 MILLIGRAM, ONCE A DAY
     Route: 064
  6. NIMESULIDE [Suspect]
     Active Substance: NIMESULIDE
     Dosage: 200 MILLIGRAM, ONCE A DAY
     Route: 064
  7. NIMESULIDE [Suspect]
     Active Substance: NIMESULIDE
     Dosage: 1 DOSAGE FORM, ONCE A DAY MATERNAL DOSE: 1 DF, QD (1 UG/LITRE)
     Route: 064
  8. NIMESULIDE [Suspect]
     Active Substance: NIMESULIDE
     Dosage: 100-200 MG/DAY
     Route: 064

REACTIONS (25)
  - Renal failure neonatal [Recovered/Resolved]
  - Neonatal respiratory distress syndrome [Recovered/Resolved]
  - Ductus arteriosus stenosis foetal [Recovered/Resolved]
  - Premature baby [Unknown]
  - Cyanosis neonatal [Recovered/Resolved]
  - Neonatal respiratory acidosis [Recovered/Resolved]
  - Bradycardia neonatal [Recovered/Resolved]
  - Bradycardia [Recovered/Resolved]
  - Cyanosis [Recovered/Resolved]
  - Renal failure [Unknown]
  - Polyuria [Unknown]
  - Low birth weight baby [Unknown]
  - Emphysema [Unknown]
  - Blood creatinine increased [Recovered/Resolved]
  - Foetal exposure during pregnancy [Unknown]
  - Respiratory distress [Unknown]
  - Ductus arteriosus premature closure [Recovered/Resolved]
  - Prescribed overdose [Unknown]
  - Contraindication to medical treatment [Unknown]
  - Premature delivery [Recovered/Resolved]
  - Oligohydramnios [Unknown]
  - Specific gravity urine abnormal [Unknown]
  - Bladder disorder [Unknown]
  - Amniotic cavity disorder [Unknown]
  - Respiratory acidosis [Unknown]
